FAERS Safety Report 8616057-8 (Version None)
Quarter: 2012Q3

REPORT INFORMATION
  Report Type: 
  Country: None (occurrence: None)
  Receive Date: 20120823
  Receipt Date: 20120809
  Transmission Date: 20120928
  Serious: Yes (Hospitalization)
  Sender: FDA-Public Use
  Company Number: US-ROCHE-GNE306948

PATIENT
  Sex: Female
  Weight: 76.272 kg

DRUGS (14)
  1. OMALIZUMAB [Suspect]
     Dates: start: 20071027, end: 20120202
  2. OMALIZUMAB [Suspect]
     Indication: ASTHMA
     Route: 058
     Dates: start: 20100601, end: 20111027
  3. VITAMIN AND MINERAL PRENATAL SUPPLEMENT W/ FOLIC ACID CAP [Concomitant]
     Indication: PREGNANCY
     Route: 048
  4. PULMICORT [Concomitant]
     Indication: ASTHMA
  5. ALBUTEROL [Concomitant]
     Indication: ASTHMA
  6. POLY VI SOL [Concomitant]
  7. BACTRIM [Concomitant]
  8. PREDNISONE TAB [Concomitant]
     Indication: ASTHMA
  9. AMOXICILLIN [Concomitant]
     Indication: EAR INFECTION
  10. SALINE NASAL DROPS [Concomitant]
     Indication: NASAL CONGESTION
  11. METFORMIN [Concomitant]
     Indication: TYPE 2 DIABETES MELLITUS
  12. INSULIN [Concomitant]
     Indication: TYPE 2 DIABETES MELLITUS
     Dosage: UNK
  13. BUDESONIDE [Concomitant]
     Indication: ASTHMA
  14. PREDNISONE TAB [Concomitant]
     Indication: PULMONARY EMBOLISM

REACTIONS (8)
  - MATERNAL EXPOSURE DURING PREGNANCY [None]
  - WHEEZING [None]
  - BRONCHIOLITIS [None]
  - EAR INFECTION [None]
  - PULMONARY EMBOLISM [None]
  - DIABETES MELLITUS INADEQUATE CONTROL [None]
  - NASAL CONGESTION [None]
  - ABDOMINAL PAIN [None]
